FAERS Safety Report 23211174 (Version 1)
Quarter: 2023Q4

REPORT INFORMATION
  Report Type: Spontaneous
  Country: US (occurrence: US)
  Receive Date: 20231121
  Receipt Date: 20231121
  Transmission Date: 20240110
  Serious: No
  Sender: FDA-Public Use
  Company Number: US-SA-SAC20231114000997

PATIENT
  Age: 8 Year
  Sex: Male

DRUGS (1)
  1. DUPIXENT [Suspect]
     Active Substance: DUPILUMAB
     Indication: Asthma
     Dosage: 200MG, EVERY OTHER WEEK
     Route: 058
     Dates: start: 20230101

REACTIONS (3)
  - Wheezing [Unknown]
  - Gastrooesophageal reflux disease [Unknown]
  - Asthma [Unknown]

NARRATIVE: CASE EVENT DATE: 20230101
